FAERS Safety Report 12095679 (Version 1)
Quarter: 2016Q1

REPORT INFORMATION
  Report Type: Spontaneous
  Country: US (occurrence: US)
  Receive Date: 20160219
  Receipt Date: 20160219
  Transmission Date: 20160526
  Serious: No
  Sender: FDA-Public Use
  Company Number: US-ALLERGAN-1503927US

PATIENT
  Sex: Female

DRUGS (1)
  1. TAZORAC [Suspect]
     Active Substance: TAZAROTENE
     Indication: ACNE
     Route: 061

REACTIONS (3)
  - Sebaceous gland disorder [Not Recovered/Not Resolved]
  - Skin tightness [Not Recovered/Not Resolved]
  - Skin disorder [Not Recovered/Not Resolved]
